FAERS Safety Report 25021649 (Version 4)
Quarter: 2025Q2

REPORT INFORMATION
  Report Type: Spontaneous
  Country: US (occurrence: US)
  Receive Date: 20250228
  Receipt Date: 20250403
  Transmission Date: 20250717
  Serious: No
  Sender: KARYOPHARM THERAPEUTICS
  Company Number: US-KARYOPHARM-2025KPT000191

PATIENT

DRUGS (15)
  1. XPOVIO [Suspect]
     Active Substance: SELINEXOR
     Indication: Plasma cell myeloma
     Route: 048
     Dates: start: 2024
  2. ACYCLOVIR [Concomitant]
     Active Substance: ACYCLOVIR
  3. AZITHROMYCIN [Concomitant]
     Active Substance: AZITHROMYCIN
  4. BACTRIM DS [Concomitant]
     Active Substance: SULFAMETHOXAZOLE\TRIMETHOPRIM
  5. CLONAZEPAM [Concomitant]
     Active Substance: CLONAZEPAM
  6. DEXAMETHASONE [Concomitant]
     Active Substance: DEXAMETHASONE
  7. LACTULOSE [Concomitant]
     Active Substance: LACTULOSE
  8. OLANZAPINE [Concomitant]
     Active Substance: OLANZAPINE
  9. ONDANSETRON [Concomitant]
     Active Substance: ONDANSETRON
  10. OXYCODONE [Concomitant]
     Active Substance: OXYCODONE
  11. POMALYST [Concomitant]
     Active Substance: POMALIDOMIDE
  12. PROCHLORPERAZINE [Concomitant]
     Active Substance: PROCHLORPERAZINE
  13. SUMATRIPTAN [Concomitant]
     Active Substance: SUMATRIPTAN
  14. TAMSULOSIN [Concomitant]
     Active Substance: TAMSULOSIN
  15. ZOLPIDEM TARTRATE [Concomitant]
     Active Substance: ZOLPIDEM TARTRATE

REACTIONS (3)
  - Ageusia [Not Recovered/Not Resolved]
  - Asthenia [Unknown]
  - Plasma cell myeloma [Unknown]

NARRATIVE: CASE EVENT DATE: 20240101
